FAERS Safety Report 4446713-7 (Version None)
Quarter: 2004Q3

REPORT INFORMATION
  Report Type: 
  Country: None (occurrence: None)
  Receive Date: 20040908
  Receipt Date: 20040812
  Transmission Date: 20050211
  Serious: Yes (Death)
  Sender: FDA-Public Use
  Company Number: GBS040715330

PATIENT
  Age: 70 Year
  Sex: Female
  Weight: 55 kg

DRUGS (7)
  1. XIGRIS [Suspect]
     Indication: SEPSIS
     Dosage: 24 UG/KG/HR
     Dates: start: 20040711
  2. HEPARIN [Concomitant]
  3. AMIODARONE HCL [Concomitant]
  4. LANSOPRAZOLE [Concomitant]
  5. COLOMYCIN (COLISTIN) [Concomitant]
  6. TAZOCIN [Concomitant]
  7. GENTAMYCIN SULFATE [Concomitant]

REACTIONS (1)
  - HAEMORRHAGE INTRACRANIAL [None]
